FAERS Safety Report 6586277-5 (Version None)
Quarter: 2010Q1

REPORT INFORMATION
  Report Type: 
  Country: None (occurrence: None)
  Receive Date: 20100217
  Receipt Date: 20090303
  Transmission Date: 20100710
  Serious: No
  Sender: FDA-Public Use
  Company Number: US-ALLERGAN-0900514US

PATIENT
  Age: 48 Year
  Sex: Male
  Weight: 183.22 kg

DRUGS (34)
  1. BOTOX [Suspect]
     Indication: TORTICOLLIS
     Dosage: 130 UNITS, SINGLE
     Route: 030
     Dates: start: 20081211, end: 20081211
  2. BOTOX [Suspect]
     Indication: SPINAL OSTEOARTHRITIS
  3. ABILIFY [Concomitant]
     Dosage: 10 MG, QD
  4. ALBUTEROL [Concomitant]
     Dosage: 2 PUFFS, PRN
  5. ALLOPURINOL [Concomitant]
     Dosage: 300 MG, QD
  6. ASTELIN [Concomitant]
     Dosage: 137 UG, BID
     Route: 045
  7. FEXOFENADINE [Concomitant]
     Dosage: 180 MG, QD
  8. FLOMAX [Concomitant]
     Dosage: 0.4 MG, QD
  9. FLUTICASONE PROPIONATE [Concomitant]
     Dosage: 50 UG, BID
  10. GABAPENTIN [Concomitant]
     Dosage: 800 MG, TID
  11. GABAPENTIN [Concomitant]
     Dosage: 1600 MG, QHS
  12. HUMALOG PEN MIX [Concomitant]
     Dosage: 100 UNITS, UNK
  13. IPRATROPIUM BROMIDE [Concomitant]
     Dosage: 0.03 %, TID
     Route: 055
  14. IRRIGATION FLUID [Concomitant]
     Dosage: 0.9 SOL, PRN
  15. KLONOPIN [Concomitant]
     Dosage: 0.5 MG, BID
  16. LANTUS [Concomitant]
     Dosage: 50 UNITS, BID
  17. MIRAPEX [Concomitant]
     Dosage: 7.5 MG, QHS
  18. NITROLINGUAL [Concomitant]
     Dosage: 400 UG, PRN
  19. NYSTOP [Concomitant]
     Dosage: 100000 UNITS, PRN
  20. OXYCONTIN [Concomitant]
     Dosage: 20 MG, BID
  21. POTASSIUM CHLORATE [Concomitant]
     Dosage: 10 MEQ, TID
  22. PRISTIQ [Concomitant]
     Dosage: 100 MG, QAM
  23. REGLAN [Concomitant]
     Dosage: 10 MG, QID
  24. REMERON [Concomitant]
     Dosage: 15 MG, QHS
  25. ROXICODONE [Concomitant]
     Dosage: 15 MG, 5X/DAY
  26. SOMA [Concomitant]
     Dosage: 350 MG, QID
  27. SSD [Concomitant]
     Dosage: 1 %, PRN
  28. SYNTHROID [Concomitant]
     Dosage: 274 UG, QD
  29. TORSEMIDE [Concomitant]
     Dosage: 100 MG, QD
  30. TRICOR [Concomitant]
     Dosage: 100 MG, PRN
  31. VALIUM [Concomitant]
     Dosage: 10 MG, QID
  32. VIAGRA [Concomitant]
     Dosage: 100 MG, PRN
  33. XENADERM [Concomitant]
     Dosage: UNK, PRN
  34. ZEGERID [Concomitant]
     Dosage: 40/1100 MG, BID

REACTIONS (5)
  - DIARRHOEA [None]
  - FLUSHING [None]
  - HYPERHIDROSIS [None]
  - INFLUENZA [None]
  - PYREXIA [None]
